FAERS Safety Report 13656815 (Version 1)
Quarter: 2017Q2

REPORT INFORMATION
  Report Type: Spontaneous
  Country: None (occurrence: ES)
  Receive Date: 20170615
  Receipt Date: 20170615
  Transmission Date: 20170830
  Serious: No
  Sender: FDA-Public Use
  Company Number: ES-ALLERGAN-1704263US

PATIENT

DRUGS (1)
  1. OXYBUTYNIN UNK [Suspect]
     Active Substance: OXYBUTYNIN
     Indication: PRODUCT USED FOR UNKNOWN INDICATION
     Route: 062

REACTIONS (3)
  - Product physical issue [Unknown]
  - Erythema [Unknown]
  - Pain [Unknown]
